FAERS Safety Report 15009645 (Version 2)
Quarter: 2020Q1

REPORT INFORMATION
  Report Type: Report from Study
  Country: None (occurrence: US)
  Receive Date: 20180614
  Receipt Date: 20200317
  Transmission Date: 20200409
  Serious: Yes (Hospitalization, Other)
  Sender: FDA-Public Use
  Company Number: US-ABBVIE-18K-163-2214341-00

PATIENT
  Age: 42 Year
  Sex: Female

DRUGS (8)
  1. LATANOPROST. [Concomitant]
     Active Substance: LATANOPROST
     Indication: PRODUCT USED FOR UNKNOWN INDICATION
  2. GABAPENTIN. [Concomitant]
     Active Substance: GABAPENTIN
     Indication: PRODUCT USED FOR UNKNOWN INDICATION
  3. HUMIRA [Suspect]
     Active Substance: ADALIMUMAB
     Indication: UVEITIS
     Route: 058
     Dates: start: 20170929
  4. TRAMADOL HCL [Concomitant]
     Active Substance: TRAMADOL HYDROCHLORIDE
     Indication: PRODUCT USED FOR UNKNOWN INDICATION
  5. HUMIRA [Suspect]
     Active Substance: ADALIMUMAB
     Indication: PSORIASIS
     Route: 058
     Dates: start: 20180105, end: 20180202
  6. FOLIC ACID. [Concomitant]
     Active Substance: FOLIC ACID
     Indication: PRODUCT USED FOR UNKNOWN INDICATION
  7. ACETAMINOPHEN. [Concomitant]
     Active Substance: ACETAMINOPHEN
     Indication: PRODUCT USED FOR UNKNOWN INDICATION
  8. METHOTREXATE. [Concomitant]
     Active Substance: METHOTREXATE
     Indication: PRODUCT USED FOR UNKNOWN INDICATION

REACTIONS (25)
  - Animal bite [Unknown]
  - Rash [Recovered/Resolved]
  - Headache [Recovered/Resolved with Sequelae]
  - Uveitis [Unknown]
  - Glaucoma [Unknown]
  - Thermal burn [Unknown]
  - Nausea [Not Recovered/Not Resolved]
  - Cataract [Unknown]
  - Dry mouth [Recovered/Resolved]
  - Pain [Unknown]
  - Paranoia [Unknown]
  - Anxiety [Unknown]
  - Impaired healing [Not Recovered/Not Resolved]
  - Oedema peripheral [Unknown]
  - Sinusitis [Unknown]
  - Animal bite [Recovered/Resolved]
  - Ear infection [Unknown]
  - Cardiomyopathy [Unknown]
  - Blindness unilateral [Unknown]
  - Myocardial infarction [Unknown]
  - Inflammation [Unknown]
  - Upper respiratory tract infection [Unknown]
  - Wound [Unknown]
  - Staphylococcal skin infection [Recovered/Resolved]
  - Headache [Unknown]

NARRATIVE: CASE EVENT DATE: 20171218
